FAERS Safety Report 4906290-0 (Version None)
Quarter: 2006Q1

REPORT INFORMATION
  Report Type: 
  Country: None (occurrence: None)
  Receive Date: 20060209
  Receipt Date: 20060130
  Transmission Date: 20060701
  Serious: Yes (Hospitalization)
  Sender: FDA-Public Use
  Company Number: US-JNJFOC-20060200498

PATIENT
  Sex: Female
  Weight: 97.52 kg

DRUGS (8)
  1. DURAGESIC-100 [Suspect]
     Route: 062
  2. POTASSIUM [Concomitant]
     Route: 048
  3. HYDROCHLOROTHIAZIDE [Concomitant]
     Indication: HYPERTENSION
     Route: 048
  4. EFFEXOR [Concomitant]
     Indication: PAIN
     Route: 048
     Dates: start: 20050101
  5. DARVOCET [Concomitant]
     Route: 048
  6. DARVOCET [Concomitant]
     Indication: PAIN
     Route: 048
  7. LISINOPRIL [Concomitant]
     Route: 048
  8. LASIX [Concomitant]
     Route: 048

REACTIONS (2)
  - BREAST CANCER [None]
  - HYPERHIDROSIS [None]
